FAERS Safety Report 14509769 (Version 1)
Quarter: 2018Q1

REPORT INFORMATION
  Report Type: Spontaneous
  Country: US (occurrence: US)
  Receive Date: 20180207
  Receipt Date: 20180207
  Transmission Date: 20180509
  Serious: Yes (Hospitalization)
  Sender: FDA-Public Use
  Company Number: None

PATIENT
  Age: 82 Year
  Sex: Male
  Weight: 96.12 kg

DRUGS (1)
  1. SIMVASTATIN. [Suspect]
     Active Substance: SIMVASTATIN
     Indication: RHABDOMYOLYSIS
     Route: 048
     Dates: start: 20150522, end: 20170905

REACTIONS (7)
  - Acute kidney injury [None]
  - Blood calcium increased [None]
  - Myalgia [None]
  - Fall [None]
  - Mental status changes [None]
  - Asthenia [None]
  - Rhabdomyolysis [None]

NARRATIVE: CASE EVENT DATE: 20170904
